FAERS Safety Report 9440533 (Version 1)
Quarter: 2013Q3

REPORT INFORMATION
  Report Type: Spontaneous
  Country: FR (occurrence: FR)
  Receive Date: 20130805
  Receipt Date: 20130805
  Transmission Date: 20140515
  Serious: Yes (Death, Hospitalization)
  Sender: FDA-Public Use
  Company Number: FR-B.I. PHARMACEUTICALS,INC./RIDGEFIELD-2013-FF-00120FF

PATIENT
  Age: 82 Year
  Sex: Female

DRUGS (3)
  1. PRADAXA [Suspect]
     Dosage: 220 MG
     Route: 048
     Dates: start: 201212, end: 20121224
  2. KARDEGIC [Suspect]
  3. AMIODARONE [Suspect]

REACTIONS (3)
  - Death [Fatal]
  - Rectal haemorrhage [Recovered/Resolved]
  - Anaemia [Recovered/Resolved]
